FAERS Safety Report 7388197-5 (Version None)
Quarter: 2011Q1

REPORT INFORMATION
  Report Type: 
  Country: None (occurrence: None)
  Receive Date: 20110329
  Receipt Date: 20110329
  Transmission Date: 20110831
  Serious: No
  Sender: FDA-Public Use
  Company Number: None

PATIENT
  Age: 45 Year
  Sex: Male
  Weight: 76.2043 kg

DRUGS (2)
  1. PROPECIA [Concomitant]
  2. PENTASA [Suspect]
     Indication: CROHN'S DISEASE
     Dosage: 500 MG ONCE A DAY 2 PILLS
     Dates: start: 20110120

REACTIONS (3)
  - DRUG INTERACTION [None]
  - LIBIDO DECREASED [None]
  - SEMEN VOLUME DECREASED [None]
